FAERS Safety Report 16647033 (Version 3)
Quarter: 2019Q3

REPORT INFORMATION
  Report Type: Report from Study
  Country: None (occurrence: CO)
  Receive Date: 20190730
  Receipt Date: 20190923
  Transmission Date: 20191004
  Serious: Yes (Other)
  Sender: FDA-Public Use
  Company Number: CO-ABBVIE-19K-036-2871937-00

PATIENT
  Age: 39 Year
  Sex: Female
  Weight: 55 kg

DRUGS (3)
  1. HUMIRA [Suspect]
     Active Substance: ADALIMUMAB
     Indication: ANKYLOSING SPONDYLITIS
     Route: 058
  2. HUMIRA [Suspect]
     Active Substance: ADALIMUMAB
     Indication: ANKYLOSING SPONDYLITIS
     Route: 058
     Dates: start: 20140708
  3. ADVIL [Concomitant]
     Active Substance: IBUPROFEN
     Indication: ANKYLOSING SPONDYLITIS
     Route: 048
     Dates: start: 201905

REACTIONS (7)
  - Otosclerosis [Not Recovered/Not Resolved]
  - Arthritis [Recovering/Resolving]
  - Amnesia [Recovering/Resolving]
  - Syncope [Recovering/Resolving]
  - Blindness [Recovering/Resolving]
  - Asthenia [Recovering/Resolving]
  - Deafness [Recovering/Resolving]

NARRATIVE: CASE EVENT DATE: 2016
